FAERS Safety Report 11324197 (Version 2)
Quarter: 2015Q3

REPORT INFORMATION
  Report Type: Report from Study
  Country: BR (occurrence: BR)
  Receive Date: 20150730
  Receipt Date: 20150804
  Transmission Date: 20151125
  Serious: Yes (Other)
  Sender: FDA-Public Use
  Company Number: PHHY2014BR124014

PATIENT
  Sex: Female
  Weight: 54 kg

DRUGS (9)
  1. OMEPRAZOLE. [Concomitant]
     Active Substance: OMEPRAZOLE
     Indication: PROPHYLAXIS
     Dosage: 1 DF, QD (AT MORNING)
     Route: 065
  2. PULMOZYME [Concomitant]
     Active Substance: DORNASE ALFA
     Indication: CYSTIC FIBROSIS
     Dosage: 1 DF, QD
     Route: 055
  3. VITAMIN D [Concomitant]
     Active Substance: CHOLECALCIFEROL
     Indication: CYSTIC FIBROSIS
     Dosage: UNK, QD (5 DROPS A DAY)
     Route: 065
  4. AZITHROMYCIN [Concomitant]
     Active Substance: AZITHROMYCIN ANHYDROUS
     Indication: CYSTIC FIBROSIS
     Dosage: 1 DF, QW3 (1 TABLET ON MONDAYS, WEDNESDAYS AND FRIDAYS)
     Route: 065
  5. CIPROFLOXACIN. [Concomitant]
     Active Substance: CIPROFLOXACIN
     Indication: CYSTIC FIBROSIS
     Dosage: 1 DF, BID (1 IN MORNING AND 1 IN NIGHT)
     Route: 065
     Dates: start: 20140917
  6. IBUPROFEN. [Concomitant]
     Active Substance: IBUPROFEN
     Indication: CYSTIC FIBROSIS
     Dosage: 2 DF, QD (FOR 10 DAYS ONLY)
     Route: 065
     Dates: start: 20140917
  7. URSOCOL [Concomitant]
     Dosage: 1 DF, QD
     Route: 065
  8. POLY VITAMIN [Concomitant]
     Indication: CYSTIC FIBROSIS
     Dosage: UNK, QD (24 DROPS PER DAY)
     Route: 065
  9. ZOTEON PODHALER [Suspect]
     Active Substance: TOBRAMYCIN
     Indication: CYSTIC FIBROSIS
     Dosage: 2 DF, 1 TABLET/ MORNING 1 TABLET/ NIGHT
     Dates: start: 201407

REACTIONS (2)
  - Cystic fibrosis hepatic disease [Unknown]
  - Incorrect dose administered [Unknown]
